FAERS Safety Report 22181756 (Version 1)
Quarter: 2023Q2

REPORT INFORMATION
  Report Type: Spontaneous
  Country: BR (occurrence: BR)
  Receive Date: 20230406
  Receipt Date: 20230406
  Transmission Date: 20230722
  Serious: Yes (Hospitalization, Other)
  Sender: FDA-Public Use
  Company Number: BR-AMGEN-BRASP2023053973

PATIENT
  Age: 92 Year
  Sex: Female
  Weight: 48 kg

DRUGS (8)
  1. CINACALCET HYDROCHLORIDE [Suspect]
     Active Substance: CINACALCET HYDROCHLORIDE
     Indication: Blood calcium abnormal
     Dosage: 30 MILLIGRAM
     Route: 048
  2. XARELTO [Concomitant]
     Active Substance: RIVAROXABAN
     Dosage: 20 MILLIGRAM, QD
     Dates: start: 202301
  3. LOSARTAN [Concomitant]
     Active Substance: LOSARTAN
     Indication: Blood pressure abnormal
     Dosage: UNK
     Dates: start: 202212
  4. AMLODIPINE [Concomitant]
     Active Substance: AMLODIPINE BESYLATE
     Indication: Blood pressure abnormal
  5. BISOPROLOL FUMARATE [Concomitant]
     Active Substance: BISOPROLOL FUMARATE
     Indication: Cardiac disorder
     Dosage: UNK
     Dates: start: 202212
  6. EMPAGLIFLOZIN\METFORMIN HYDROCHLORIDE [Concomitant]
     Active Substance: EMPAGLIFLOZIN\METFORMIN HYDROCHLORIDE
     Indication: Cardiac disorder
     Dosage: UNK
     Dates: start: 202212
  7. ATORVASTATIN CALCIUM ANHYDROUS [Concomitant]
     Active Substance: ATORVASTATIN CALCIUM ANHYDROUS
     Indication: Blood cholesterol abnormal
  8. CARBAMAZEPINE [Concomitant]
     Active Substance: CARBAMAZEPINE
     Indication: Seizure

REACTIONS (9)
  - Cardiac disorder [Recovering/Resolving]
  - Leg amputation [Recovering/Resolving]
  - Cardiac pacemaker insertion [Unknown]
  - Parathyroid tumour benign [Recovering/Resolving]
  - Pain [Recovering/Resolving]
  - Ill-defined disorder [Recovering/Resolving]
  - Swelling [Recovering/Resolving]
  - Off label use [Unknown]
  - Angiopathy [Recovering/Resolving]

NARRATIVE: CASE EVENT DATE: 20221201
